FAERS Safety Report 7308682-1 (Version None)
Quarter: 2011Q1

REPORT INFORMATION
  Report Type: 
  Country: None (occurrence: None)
  Receive Date: 20110223
  Receipt Date: 20110208
  Transmission Date: 20110831
  Serious: Yes (Other)
  Sender: FDA-Public Use
  Company Number: PHHY2011IT00606

PATIENT
  Sex: Female

DRUGS (7)
  1. INSULIN [Concomitant]
  2. RISEDRONATE SODIUM [Concomitant]
     Dosage: UNK
  3. CALCIUM WITH VITAMIN D [Concomitant]
  4. ESTROPROGESTINIC [Concomitant]
  5. DEFERASIROX [Suspect]
     Indication: THALASSAEMIA BETA
     Dosage: 2375 MG/KG, UNK
     Route: 048
     Dates: start: 20101201, end: 20101210
  6. LEVOTHYROXINE SODIUM [Concomitant]
  7. DEFERASIROX [Suspect]
     Dosage: UNK

REACTIONS (9)
  - FACE OEDEMA [None]
  - HYPERTHERMIA [None]
  - LIP OEDEMA [None]
  - THROAT TIGHTNESS [None]
  - CHILLS [None]
  - ERYTHEMA [None]
  - PRURITUS GENERALISED [None]
  - NAUSEA [None]
  - OVERDOSE [None]
